FAERS Safety Report 4577659-1 (Version None)
Quarter: 2005Q1

REPORT INFORMATION
  Report Type: 
  Country: None (occurrence: None)
  Receive Date: 20050210
  Receipt Date: 20041020
  Transmission Date: 20050727
  Serious: Yes (Life-Threatening, Hospitalization, Disabling, Other)
  Sender: FDA-Public Use
  Company Number: US-MERCK-0410USA03187

PATIENT
  Age: 66 Year
  Sex: Male
  Weight: 94 kg

DRUGS (14)
  1. VIOXX [Suspect]
     Indication: ARTHRITIS
     Route: 048
     Dates: end: 20040101
  2. VISTARIL [Concomitant]
     Route: 065
  3. FLOMAX [Concomitant]
     Route: 065
  4. ASPIRIN [Concomitant]
     Route: 065
  5. TOPROL-XL [Concomitant]
     Route: 065
  6. LOPID [Concomitant]
     Route: 065
  7. SEROQUEL [Concomitant]
     Route: 065
  8. ALLOPRINOL [Concomitant]
     Route: 065
  9. LISINOPRIL [Concomitant]
     Route: 065
  10. IMDUR [Concomitant]
     Route: 065
  11. DARVOCET-N 100 [Concomitant]
     Route: 065
  12. NITROGLYCERIN [Concomitant]
     Route: 060
  13. MOTRIN [Concomitant]
     Route: 065
  14. DEMADEX [Concomitant]
     Route: 065

REACTIONS (2)
  - CEREBROVASCULAR ACCIDENT [None]
  - RENAL FAILURE [None]
